FAERS Safety Report 13815918 (Version 1)
Quarter: 2017Q3

REPORT INFORMATION
  Report Type: Spontaneous
  Country: US (occurrence: US)
  Receive Date: 20170731
  Receipt Date: 20170731
  Transmission Date: 20171127
  Serious: No
  Sender: FDA-Public Use
  Company Number: US-SA-2017SA115280

PATIENT
  Sex: Female

DRUGS (1)
  1. AMBIEN [Suspect]
     Active Substance: ZOLPIDEM TARTRATE
     Indication: INSOMNIA
     Route: 048

REACTIONS (5)
  - Feeling abnormal [Unknown]
  - Balance disorder [Unknown]
  - Adverse drug reaction [Unknown]
  - Tinnitus [Unknown]
  - Insomnia [Unknown]
